FAERS Safety Report 18900325 (Version 3)
Quarter: 2021Q2

REPORT INFORMATION
  Report Type: Spontaneous
  Country: GB (occurrence: GB)
  Receive Date: 20210216
  Receipt Date: 20210429
  Transmission Date: 20210717
  Serious: Yes (Hospitalization, Other)
  Sender: FDA-Public Use
  Company Number: GB-VERTEX PHARMACEUTICALS-2021-002537

PATIENT
  Age: 30 Year

DRUGS (13)
  1. KALYDECO [Suspect]
     Active Substance: IVACAFTOR
     Indication: CYSTIC FIBROSIS
     Dosage: UNKNOWN
     Route: 048
     Dates: end: 20201017
  2. OMEPRAZOLE. [Concomitant]
     Active Substance: OMEPRAZOLE
  3. CALSHAKE [Concomitant]
  4. SALBUTAMOL [Concomitant]
     Active Substance: ALBUTEROL
  5. KAFTRIO [Suspect]
     Active Substance: ELEXACAFTOR\IVACAFTOR\TEZACAFTOR
     Indication: CYSTIC FIBROSIS
     Dosage: UNKNOWN
     Route: 048
     Dates: end: 20201017
  6. DORNASE [Concomitant]
     Active Substance: STREPTODORNASE\STREPTOKINASE
  7. KAFTRIO [Suspect]
     Active Substance: ELEXACAFTOR\IVACAFTOR\TEZACAFTOR
     Dosage: 1 TABLET KAFTRIO AT NIGHT ONLY
     Route: 048
  8. AMITRIPTYLINE [Suspect]
     Active Substance: AMITRIPTYLINE
     Indication: HEMIPLEGIC MIGRAINE
     Route: 065
  9. FLIXONASE [Concomitant]
     Active Substance: FLUTICASONE PROPIONATE
  10. CREON [Concomitant]
     Active Substance: PANCRELIPASE AMYLASE\PANCRELIPASE LIPASE\PANCRELIPASE PROTEASE
  11. HYPERTONIC SALINE SOLUTION [Concomitant]
     Active Substance: SODIUM CHLORIDE
  12. URSO [Concomitant]
     Active Substance: URSODIOL
  13. MEROPENEM. [Concomitant]
     Active Substance: MEROPENEM

REACTIONS (2)
  - Hemiplegic migraine [Unknown]
  - Nightmare [Unknown]

NARRATIVE: CASE EVENT DATE: 20201002
